FAERS Safety Report 5140163-6 (Version None)
Quarter: 2006Q4

REPORT INFORMATION
  Report Type: 
  Country: None (occurrence: None)
  Receive Date: 20061031
  Receipt Date: 20061024
  Transmission Date: 20070319
  Serious: Yes (Other)
  Sender: FDA-Public Use
  Company Number: BR-ROCHE-468737

PATIENT
  Age: 17 Year
  Sex: Male
  Weight: 77 kg

DRUGS (3)
  1. ROACUTAN [Suspect]
     Indication: ACNE
     Route: 048
     Dates: start: 20040330, end: 20040430
  2. ROACUTAN [Suspect]
     Dosage: STRENGTH AND FORMULATION REPORTED AS 20MG + 10MG/CAP.
     Route: 048
     Dates: start: 20040501, end: 20040729
  3. ROACUTAN [Suspect]
     Route: 048
     Dates: start: 20040730, end: 20041001

REACTIONS (1)
  - AFFECTIVE DISORDER [None]
